FAERS Safety Report 23560568 (Version 1)
Quarter: 2024Q1

REPORT INFORMATION
  Report Type: Spontaneous
  Country: SE (occurrence: SE)
  Receive Date: 20240223
  Receipt Date: 20240223
  Transmission Date: 20240410
  Serious: Yes (Other)
  Sender: FDA-Public Use
  Company Number: None

PATIENT
  Age: 33 Year
  Sex: Female
  Weight: 54 kg

DRUGS (7)
  1. PROMETHAZINE HYDROCHLORIDE [Suspect]
     Active Substance: PROMETHAZINE HYDROCHLORIDE
     Indication: Post-traumatic stress disorder
     Dosage: 5 MILLIGRAM, PRN (1 TABLET (IF NEEDED), )
     Route: 048
  2. PROMETHAZINE HYDROCHLORIDE [Suspect]
     Active Substance: PROMETHAZINE HYDROCHLORIDE
     Indication: Anxiety
  3. AMITRIPTYLINE HYDROCHLORIDE [Concomitant]
     Active Substance: AMITRIPTYLINE HYDROCHLORIDE
     Dosage: 2 TABLETS DAILY AT NIGHT
     Route: 048
  4. SINGULAIR [Concomitant]
     Active Substance: MONTELUKAST SODIUM
     Dosage: QD (1 TABLET DAILY IN THE EVENING)
     Route: 048
  5. BUDESONIDE [Concomitant]
     Active Substance: BUDESONIDE
     Dosage: BID (1 DOSE MORNING AND EVENING)
     Route: 055
  6. ACETAMINOPHEN [Concomitant]
     Active Substance: ACETAMINOPHEN
     Dosage: BID (2 TABLETS TWICE DAILY)
     Route: 048
  7. EBASTINE [Concomitant]
     Active Substance: EBASTINE
     Dosage: QD (2 TABLETS DAILY)
     Route: 048

REACTIONS (5)
  - Confusional state [Recovering/Resolving]
  - Tinnitus [Recovering/Resolving]
  - Headache [Recovering/Resolving]
  - Body temperature decreased [Recovering/Resolving]
  - Constipation [Recovered/Resolved]
